FAERS Safety Report 4558709-5 (Version None)
Quarter: 2005Q1

REPORT INFORMATION
  Report Type: 
  Country: None (occurrence: None)
  Receive Date: 20050121
  Receipt Date: 20050121
  Transmission Date: 20050727
  Serious: Yes (Disabling)
  Sender: FDA-Public Use
  Company Number: None

PATIENT
  Age: 47 Year
  Sex: Female
  Weight: 94 kg

DRUGS (1)
  1. NEULASTA [Suspect]
     Indication: PANCYTOPENIA
     Dosage: 6 MG
     Dates: start: 20041101

REACTIONS (5)
  - ARTHRALGIA [None]
  - BONE PAIN [None]
  - DIFFICULTY IN WALKING [None]
  - NAUSEA [None]
  - SENSORY LOSS [None]
